FAERS Safety Report 22909879 (Version 4)
Quarter: 2023Q4

REPORT INFORMATION
  Report Type: Report from Study
  Country: CN (occurrence: CN)
  Receive Date: 20230906
  Receipt Date: 20231028
  Transmission Date: 20240110
  Serious: Yes (Hospitalization, Other)
  Sender: FDA-Public Use
  Company Number: CN-BAXTER-2023BAX029873

PATIENT
  Age: 60 Year
  Sex: Female
  Weight: 50.4 kg

DRUGS (27)
  1. CYCLOPHOSPHAMIDE [Suspect]
     Active Substance: CYCLOPHOSPHAMIDE
     Indication: Diffuse large B-cell lymphoma
     Dosage: 750 MG/M2, Q3W, DOSAGE FORM: INJECTION
     Route: 042
     Dates: start: 20230807, end: 20230807
  2. CYCLOPHOSPHAMIDE [Suspect]
     Active Substance: CYCLOPHOSPHAMIDE
     Dosage: 1180 MG, QD
     Route: 042
     Dates: start: 20230830, end: 20230830
  3. RITUXIMAB [Suspect]
     Active Substance: RITUXIMAB
     Indication: Diffuse large B-cell lymphoma
     Dosage: 375 MG/M2, Q3W
     Route: 041
     Dates: start: 20230807, end: 20230807
  4. RITUXIMAB [Suspect]
     Active Substance: RITUXIMAB
     Dosage: 590 MG, QD
     Route: 041
     Dates: start: 20230830, end: 20230830
  5. DOXORUBICIN HYDROCHLORIDE [Suspect]
     Active Substance: DOXORUBICIN HYDROCHLORIDE
     Indication: Diffuse large B-cell lymphoma
     Dosage: 50 MG/M2, Q3W
     Route: 042
     Dates: start: 20230807, end: 20230807
  6. DOXORUBICIN HYDROCHLORIDE [Suspect]
     Active Substance: DOXORUBICIN HYDROCHLORIDE
     Dosage: 79 MG, QD
     Route: 042
     Dates: start: 20230830, end: 20230830
  7. VINCRISTINE SULFATE [Suspect]
     Active Substance: VINCRISTINE SULFATE
     Indication: Diffuse large B-cell lymphoma
     Dosage: 1.4 MG/M2, Q3W
     Route: 042
     Dates: start: 20230807, end: 20230807
  8. VINCRISTINE SULFATE [Suspect]
     Active Substance: VINCRISTINE SULFATE
     Dosage: 2 MG, QD
     Route: 042
     Dates: start: 20230830, end: 20230830
  9. PREDNISONE [Suspect]
     Active Substance: PREDNISONE
     Indication: Diffuse large B-cell lymphoma
     Dosage: 100 MG, Q3W, DAY 1 TO DAY 5
     Route: 048
     Dates: start: 20230807, end: 20230811
  10. PREDNISONE [Suspect]
     Active Substance: PREDNISONE
     Dosage: 100 MG, QD
     Route: 048
     Dates: start: 20230830, end: 20230830
  11. DIPHENHYDRAMINE [Concomitant]
     Active Substance: DIPHENHYDRAMINE
     Dosage: UNK
     Route: 065
     Dates: start: 20230807, end: 20230807
  12. DEXAMETHASONE [Concomitant]
     Active Substance: DEXAMETHASONE
     Dosage: UNK
     Route: 065
     Dates: start: 20230807, end: 20230807
  13. ILAPRAZOLE [Concomitant]
     Active Substance: ILAPRAZOLE
     Dosage: UNK, DOSAGE FORM: INJECTION
     Route: 065
     Dates: start: 20230807, end: 20230807
  14. ILAPRAZOLE [Concomitant]
     Active Substance: ILAPRAZOLE
     Dosage: UNK, CONTINUED
     Route: 065
     Dates: start: 20230807
  15. CELECOXIB [Concomitant]
     Active Substance: CELECOXIB
     Indication: Allergy prophylaxis
     Dosage: 200 MG, Q12H
     Route: 048
     Dates: start: 20230807, end: 20230807
  16. DEXRAZOXANE [Concomitant]
     Active Substance: DEXRAZOXANE
     Dosage: UNK
     Route: 065
     Dates: start: 20230807, end: 20230807
  17. TROPISETRON [Concomitant]
     Active Substance: TROPISETRON
     Dosage: UNK
     Route: 065
     Dates: start: 20230807, end: 20230807
  18. APREPITANT [Concomitant]
     Active Substance: APREPITANT
     Dosage: UNK
     Route: 065
     Dates: start: 20230807, end: 20230809
  19. FUROSEMIDE [Concomitant]
     Active Substance: FUROSEMIDE
     Dosage: UNK
     Route: 065
     Dates: start: 20230807, end: 20230807
  20. ONDANSETRON [Concomitant]
     Active Substance: ONDANSETRON
     Dosage: UNK
     Route: 065
     Dates: start: 20230810
  21. EPIDERMAL GROWTH FACTOR [Concomitant]
     Dosage: UNK, CONTINUED
     Route: 065
     Dates: start: 20230810
  22. COMPOUND VITAMIN B12 [Concomitant]
     Dosage: UNK, CONTINUED
     Route: 065
     Dates: start: 20230810
  23. CHLORHEXIDINE [Concomitant]
     Active Substance: CHLORHEXIDINE\CHLORHEXIDINE GLUCONATE
     Dosage: UNK, CONTINUED
     Route: 065
     Dates: start: 20230810
  24. LACTULOSE [Concomitant]
     Active Substance: LACTULOSE
     Dosage: UNK, CONTINUED
     Route: 065
     Dates: start: 20230811
  25. ATORVASTATIN CALCIUM [Concomitant]
     Active Substance: ATORVASTATIN CALCIUM
     Dosage: UNK, START DATE: JAN-2018
     Route: 065
  26. CLOPIDOGREL BISULFATE [Concomitant]
     Active Substance: CLOPIDOGREL BISULFATE
     Indication: Prophylaxis
     Dosage: 75MG, ONCE A DAY (QD), (START DATE: JAN2018)
     Route: 048
  27. Xin yue [Concomitant]
     Dosage: UNK
     Route: 065

REACTIONS (2)
  - Gastritis erosive [Recovered/Resolved]
  - Chronic gastritis [Recovered/Resolved]

NARRATIVE: CASE EVENT DATE: 20230814
